FAERS Safety Report 21874249 (Version 2)
Quarter: 2023Q1

REPORT INFORMATION
  Report Type: Report from Study
  Country: CO (occurrence: CO)
  Receive Date: 20230117
  Receipt Date: 20230318
  Transmission Date: 20230417
  Serious: Yes (Other)
  Sender: FDA-Public Use
  Company Number: CO-ABBVIE-4129124

PATIENT
  Sex: Male
  Weight: 69 kg

DRUGS (7)
  1. HUMIRA [Suspect]
     Active Substance: ADALIMUMAB
     Indication: Hidradenitis
     Dosage: STRENGTH - 40 MG
     Route: 058
     Dates: start: 20190705, end: 2022
  2. HUMIRA [Suspect]
     Active Substance: ADALIMUMAB
     Route: 058
  3. Dapagliflozin Metformin HCI [Concomitant]
     Indication: Diabetes mellitus
     Dosage: STRENGTH:5 MG?1 TABLET
     Route: 048
  4. METFORMIN [Concomitant]
     Active Substance: METFORMIN HYDROCHLORIDE
     Indication: Diabetes mellitus
     Dates: end: 2022
  5. INSULIN NOS [Concomitant]
     Active Substance: INSULIN NOS
     Indication: Product used for unknown indication
     Dosage: 1 INJECTION?AT NIGHT
     Route: 058
  6. CANNABIS SATIVA SUBSP. INDICA TOP [Suspect]
     Active Substance: CANNABIS SATIVA SUBSP. INDICA TOP
     Indication: Pain
     Route: 048
     Dates: start: 202301
  7. ADALIMUMAB [Suspect]
     Active Substance: ADALIMUMAB
     Indication: Hidradenitis
     Route: 065
     Dates: start: 2022, end: 2022

REACTIONS (22)
  - Visual impairment [Not Recovered/Not Resolved]
  - Hidradenitis [Recovered/Resolved]
  - Decreased appetite [Not Recovered/Not Resolved]
  - Weight decreased [Not Recovered/Not Resolved]
  - Pallor [Not Recovered/Not Resolved]
  - Hidradenitis [Not Recovered/Not Resolved]
  - Malaise [Not Recovered/Not Resolved]
  - Inappropriate schedule of product administration [Recovering/Resolving]
  - Weight fluctuation [Not Recovered/Not Resolved]
  - Chest pain [Recovered/Resolved]
  - Hyperglycaemia [Recovering/Resolving]
  - Injury [Not Recovered/Not Resolved]
  - Bone pain [Not Recovered/Not Resolved]
  - Asphyxia [Recovered/Resolved]
  - Fall [Not Recovered/Not Resolved]
  - Feeling of despair [Recovered/Resolved]
  - Pain [Not Recovered/Not Resolved]
  - Arthralgia [Not Recovered/Not Resolved]
  - Pain in extremity [Not Recovered/Not Resolved]
  - Drug ineffective [Unknown]
  - Gait disturbance [Not Recovered/Not Resolved]
  - Weight decreased [Not Recovered/Not Resolved]

NARRATIVE: CASE EVENT DATE: 20210101
